FAERS Safety Report 11241774 (Version 1)
Quarter: 2015Q3

REPORT INFORMATION
  Report Type: Spontaneous
  Country: IR (occurrence: IR)
  Receive Date: 20150706
  Receipt Date: 20150706
  Transmission Date: 20151125
  Serious: Yes (Death, Other)
  Sender: FDA-Public Use
  Company Number: PHHY2015IR077734

PATIENT
  Age: 23 Year
  Sex: Female
  Weight: 65 kg

DRUGS (3)
  1. ACETAMINOPHEN (PARACETAMOL) [Suspect]
     Active Substance: ACETAMINOPHEN
     Indication: PRODUCT USED FOR UNKNOWN INDICATION
     Dosage: 325 MG, 50 TABLETS
     Route: 065
  2. ACETYLCYSTEINE. [Suspect]
     Active Substance: ACETYLCYSTEINE
     Indication: PRODUCT USED FOR UNKNOWN INDICATION
     Dosage: 10 G LOADING DOSE OF NAC 150MG/KG OVER 30 MINUTES
     Route: 065
  3. ACETYLCYSTEINE. [Suspect]
     Active Substance: ACETYLCYSTEINE
     Dosage: 9.5 G MAINTENANCE DOSE WITH 500ML OF 5% DEXTROSE

REACTIONS (23)
  - Tachypnoea [Unknown]
  - Radial pulse abnormal [Unknown]
  - Hypotension [Unknown]
  - Medication error [Fatal]
  - Depressed level of consciousness [Unknown]
  - Aspartate aminotransferase increased [Unknown]
  - Alanine aminotransferase increased [Unknown]
  - Oliguria [Unknown]
  - Haemolytic anaemia [Unknown]
  - Vomiting [Unknown]
  - Periorbital oedema [Unknown]
  - Thrombotic thrombocytopenic purpura [Unknown]
  - Lethargy [Unknown]
  - Dizziness [Unknown]
  - Hypernatraemia [Unknown]
  - Oedema [Unknown]
  - Haemolytic uraemic syndrome [Fatal]
  - Intentional overdose [Fatal]
  - Asthenia [Unknown]
  - Nausea [Unknown]
  - Agitation [Unknown]
  - Somnolence [Unknown]
  - Dyspnoea [Unknown]
